FAERS Safety Report 16197781 (Version 1)
Quarter: 2019Q2

REPORT INFORMATION
  Report Type: Report from Study
  Country: US (occurrence: US)
  Receive Date: 20190415
  Receipt Date: 20190415
  Transmission Date: 20190711
  Serious: Yes (Other)
  Sender: FDA-Public Use
  Company Number: US-QILU PHARMACEUTICAL CO.LTD.-QLU-000283-2019

PATIENT
  Age: 67 Year
  Sex: Male

DRUGS (10)
  1. 5-FLUROURACIL [Suspect]
     Active Substance: FLUOROURACIL
     Dosage: 1500 MG/M2, (LAST CYCLE)
     Route: 065
  2. ZALTRAP [Suspect]
     Active Substance: ZIV-AFLIBERCEPT
     Indication: COLORECTAL CANCER METASTATIC
     Dosage: 4 MG/KG, (CYCLE 1)
     Route: 065
  3. CETUXIMAB. [Concomitant]
     Active Substance: CETUXIMAB
     Indication: COLORECTAL CANCER METASTATIC
     Dosage: UNK
     Route: 065
  4. IRINOTECAN-HYDROCHLORIDE [Suspect]
     Active Substance: IRINOTECAN HYDROCHLORIDE
     Indication: COLORECTAL CANCER METASTATIC
     Dosage: 180 MG/M2, (CYCLE 1)
     Route: 065
  5. BEVACIZUMAB. [Concomitant]
     Active Substance: BEVACIZUMAB
     Indication: COLORECTAL CANCER METASTATIC
     Dosage: UNK
     Route: 065
  6. IRINOTECAN-HYDROCHLORIDE [Suspect]
     Active Substance: IRINOTECAN HYDROCHLORIDE
     Dosage: 110 MG/M2, (LAST CYCLE)
     Route: 065
  7. LEUCOVORIN. [Suspect]
     Active Substance: LEUCOVORIN
     Indication: COLORECTAL CANCER METASTATIC
     Dosage: UNK
     Route: 065
  8. ZALTRAP [Suspect]
     Active Substance: ZIV-AFLIBERCEPT
     Dosage: 4 MG/KG, (LAST CYCLE)
     Route: 065
  9. CAPECITABINE. [Concomitant]
     Active Substance: CAPECITABINE
     Indication: COLORECTAL CANCER METASTATIC
     Dosage: UNK
     Route: 065
  10. 5-FLUROURACIL [Suspect]
     Active Substance: FLUOROURACIL
     Indication: COLORECTAL CANCER METASTATIC
     Dosage: 2400 MG/M2, (CYCLE 1)
     Route: 065

REACTIONS (3)
  - Therapy partial responder [Unknown]
  - Pneumonia [Unknown]
  - Neutropenic sepsis [Unknown]
